FAERS Safety Report 7417650-0 (Version None)
Quarter: 2011Q2

REPORT INFORMATION
  Report Type: 
  Country: None (occurrence: None)
  Receive Date: 20110415
  Receipt Date: 20110405
  Transmission Date: 20111010
  Serious: Yes (Other)
  Sender: FDA-Public Use
  Company Number: PHHY2010MX48802

PATIENT
  Sex: Female

DRUGS (4)
  1. CALCIUM [Concomitant]
     Dosage: UNK
     Dates: start: 20090101, end: 20091101
  2. BONIVA [Concomitant]
  3. ACLASTA [Suspect]
     Indication: OSTEOPOROSIS
     Dosage: (5MG/100ML) PER YEAR
     Route: 042
     Dates: start: 20090207
  4. ANTIINFLAMMATORY [Concomitant]

REACTIONS (4)
  - NEPHROLITHIASIS [None]
  - FATIGUE [None]
  - CONSTIPATION [None]
  - SPINAL DISORDER [None]
